FAERS Safety Report 7773717-9 (Version None)
Quarter: 2011Q3

REPORT INFORMATION
  Report Type: 
  Country: None (occurrence: None)
  Receive Date: 20110923
  Receipt Date: 20110916
  Transmission Date: 20111222
  Serious: Yes (Other)
  Sender: FDA-Public Use
  Company Number: US-TEVA-300948USA

PATIENT
  Sex: Male

DRUGS (1)
  1. CLOZAPINE [Suspect]

REACTIONS (8)
  - BRAIN OEDEMA [None]
  - HALLUCINATION [None]
  - CENTRAL NERVOUS SYSTEM INFLAMMATION [None]
  - INSOMNIA [None]
  - MUSCLE SPASMS [None]
  - ABDOMINAL DISCOMFORT [None]
  - RESTLESSNESS [None]
  - ENCEPHALOMYELITIS [None]
